FAERS Safety Report 5396582-6 (Version None)
Quarter: 2007Q3

REPORT INFORMATION
  Report Type: 
  Country: None (occurrence: None)
  Receive Date: 20070725
  Receipt Date: 20070724
  Transmission Date: 20080115
  Serious: Yes (Death, Other)
  Sender: FDA-Public Use
  Company Number: ID-BRISTOL-MYERS SQUIBB COMPANY-13855069

PATIENT
  Age: 48 Year
  Sex: Male

DRUGS (3)
  1. MAXIPIME [Suspect]
     Indication: SEPSIS
     Route: 042
     Dates: start: 20070701, end: 20070701
  2. MERONEM [Concomitant]
  3. CIPROXIN [Concomitant]

REACTIONS (2)
  - DRUG INEFFECTIVE [None]
  - SEPSIS [None]
